FAERS Safety Report 11793027 (Version 1)
Quarter: 2015Q4

REPORT INFORMATION
  Report Type: Spontaneous
  Country: DE (occurrence: DE)
  Receive Date: 20151202
  Receipt Date: 20151202
  Transmission Date: 20160305
  Serious: Yes (Other)
  Sender: FDA-Public Use
  Company Number: DE-ASTRAZENECA-2015SF20097

PATIENT
  Age: 93 Year
  Sex: Female

DRUGS (8)
  1. BELOC ZOK [Suspect]
     Active Substance: METOPROLOL SUCCINATE
     Route: 048
  2. RISPERIDONE. [Interacting]
     Active Substance: RISPERIDONE
     Route: 048
     Dates: start: 20150228, end: 20150303
  3. ACETYLSALICYLIC ACID [Concomitant]
     Active Substance: ASPIRIN
     Route: 048
  4. AMLODIPINE [Concomitant]
     Active Substance: AMLODIPINE BESYLATE
     Route: 048
     Dates: start: 20150220, end: 20150304
  5. SIMVASTATIN. [Concomitant]
     Active Substance: SIMVASTATIN
     Route: 048
  6. TORASEMIDE [Concomitant]
     Active Substance: TORSEMIDE
     Route: 048
     Dates: start: 20150304
  7. DELIX [Concomitant]
     Active Substance: RAMIPRIL
     Route: 048
     Dates: end: 20150310
  8. TORASEMIDE [Concomitant]
     Active Substance: TORSEMIDE
     Route: 048
     Dates: end: 20150303

REACTIONS (2)
  - Drug interaction [Unknown]
  - Language disorder [Recovered/Resolved]

NARRATIVE: CASE EVENT DATE: 20150303
